FAERS Safety Report 5032213-2 (Version None)
Quarter: 2006Q2

REPORT INFORMATION
  Report Type: 
  Country: None (occurrence: None)
  Receive Date: 20060619
  Receipt Date: 20060606
  Transmission Date: 20061013
  Serious: Yes (Hospitalization)
  Sender: FDA-Public Use
  Company Number: 20063023

PATIENT
  Age: 4 Year
  Sex: Male

DRUGS (1)
  1. LIORESAL [Suspect]
     Indication: MUSCLE SPASTICITY
     Dosage: MCG, DAILY, INTRATHECAL
     Route: 037

REACTIONS (9)
  - AUTONOMIC NERVOUS SYSTEM IMBALANCE [None]
  - CONVULSION [None]
  - INCORRECT DRUG ADMINISTRATION RATE [None]
  - LUNG INFILTRATION [None]
  - MEDICAL DEVICE COMPLICATION [None]
  - MUSCLE SPASTICITY [None]
  - PYREXIA [None]
  - RESPIRATORY RATE INCREASED [None]
  - TACHYCARDIA [None]
